FAERS Safety Report 13485244 (Version 1)
Quarter: 2017Q2

REPORT INFORMATION
  Report Type: Spontaneous
  Country: US (occurrence: US)
  Receive Date: 20170425
  Receipt Date: 20170425
  Transmission Date: 20170830
  Serious: Yes (Disabling)
  Sender: FDA-Public Use
  Company Number: US-LUPIN PHARMACEUTICALS INC.-2017-01810

PATIENT
  Sex: Female

DRUGS (1)
  1. LISINOPRIL. [Suspect]
     Active Substance: LISINOPRIL
     Indication: HYPERTENSION
     Dosage: 40 MG, QD
     Route: 065

REACTIONS (6)
  - Dizziness [Unknown]
  - Gait disturbance [Unknown]
  - Muscle spasms [Unknown]
  - Vertigo [Unknown]
  - Pollakiuria [Unknown]
  - Impaired driving ability [Unknown]
